FAERS Safety Report 16234340 (Version 1)
Quarter: 2019Q2

REPORT INFORMATION
  Report Type: Spontaneous
  Country: US (occurrence: US)
  Receive Date: 20190424
  Receipt Date: 20190424
  Transmission Date: 20190711
  Serious: No
  Sender: FDA-Public Use
  Company Number: US-LANNETT COMPANY, INC.-US-2019LAN000151

PATIENT

DRUGS (2)
  1. RIFAMPIN. [Suspect]
     Active Substance: RIFAMPIN
     Indication: STAPHYLOCOCCAL INFECTION
  2. RIFAMPIN. [Suspect]
     Active Substance: RIFAMPIN
     Indication: SKIN BACTERIAL INFECTION
     Dosage: 300 MG, BID
     Route: 048
     Dates: start: 20190101, end: 20190131

REACTIONS (5)
  - Tooth discolouration [Recovering/Resolving]
  - Chromaturia [Not Recovered/Not Resolved]
  - Faeces discoloured [Not Recovered/Not Resolved]
  - Tongue discolouration [Not Recovered/Not Resolved]
  - Hair colour changes [Not Recovered/Not Resolved]

NARRATIVE: CASE EVENT DATE: 201901
